FAERS Safety Report 10224937 (Version 1)
Quarter: 2014Q2

REPORT INFORMATION
  Report Type: Spontaneous
  Country: AR (occurrence: AR)
  Receive Date: 20140609
  Receipt Date: 20140609
  Transmission Date: 20141212
  Serious: Yes (Other)
  Sender: FDA-Public Use
  Company Number: AR-BRISTOL-MYERS SQUIBB COMPANY-20860813

PATIENT
  Sex: 0

DRUGS (3)
  1. BELATACEPT [Suspect]
  2. THYMOGLOBULINE [Suspect]
  3. MYCOPHENOLATE MOFETIL [Suspect]

REACTIONS (2)
  - Deep vein thrombosis [Unknown]
  - Systemic mycosis [Unknown]
